FAERS Safety Report 22617578 (Version 3)
Quarter: 2024Q3

REPORT INFORMATION
  Report Type: Spontaneous
  Country: US (occurrence: US)
  Receive Date: 20230620
  Receipt Date: 20240712
  Transmission Date: 20241016
  Serious: No
  Sender: PIERRE FABRE MEDICAMENT
  Company Number: US-PFM-2022-05360

PATIENT
  Sex: Female
  Weight: 5 kg

DRUGS (3)
  1. HEMANGEOL [Suspect]
     Active Substance: PROPRANOLOL HYDROCHLORIDE
     Indication: Haemangioma
     Dosage: 0.8 ML, BID (2/DAY),FOR 1 WEEK
     Route: 048
  2. HEMANGEOL [Suspect]
     Active Substance: PROPRANOLOL HYDROCHLORIDE
     Dosage: 1.5 ML, BID (2/DAY), FOR 1 WEEK
     Route: 048
  3. HEMANGEOL [Suspect]
     Active Substance: PROPRANOLOL HYDROCHLORIDE
     Dosage: 2 ML, BID (2/DAY), FOR MAINTENANCE DOSING
     Route: 048

REACTIONS (2)
  - Exposure to SARS-CoV-2 [Unknown]
  - Nasal congestion [Unknown]
